FAERS Safety Report 8558179-6 (Version None)
Quarter: 2012Q3

REPORT INFORMATION
  Report Type: 
  Country: None (occurrence: None)
  Receive Date: 20120801
  Receipt Date: 20120718
  Transmission Date: 20120928
  Serious: No
  Sender: FDA-Public Use
  Company Number: US-ASTRAZENECA-2011SE42922

PATIENT
  Age: 30 Year
  Sex: Female

DRUGS (2)
  1. SEROQUEL XR [Suspect]
     Indication: BIPOLAR I DISORDER
     Route: 048
  2. SEROQUEL XR [Suspect]
     Route: 048

REACTIONS (3)
  - COLD SWEAT [None]
  - DRUG DOSE OMISSION [None]
  - INTENTIONAL DRUG MISUSE [None]
